APPROVED DRUG PRODUCT: CEFTRIAXONE
Active Ingredient: CEFTRIAXONE SODIUM
Strength: EQ 1GM BASE/VIAL
Dosage Form/Route: INJECTABLE;INTRAMUSCULAR, INTRAVENOUS
Application: A203702 | Product #003 | TE Code: AP
Applicant: QILU ANTIBIOTICS PHARMACEUTICAL CO LTD
Approved: Jun 29, 2016 | RLD: No | RS: No | Type: RX